FAERS Safety Report 22379292 (Version 6)
Quarter: 2024Q3

REPORT INFORMATION
  Report Type: Spontaneous
  Country: US (occurrence: US)
  Receive Date: 20230529
  Receipt Date: 20240904
  Transmission Date: 20241016
  Serious: Yes (Hospitalization, Other)
  Sender: GLAXOSMITHKLINE
  Company Number: US-GLAXOSMITHKLINE-US2023AMR074159

PATIENT

DRUGS (16)
  1. LAMICTAL [Suspect]
     Active Substance: LAMOTRIGINE
     Indication: Mood swings
     Dosage: 25 MG, 1 TAB EVERY HOURS WEEK 1 AND 2 AND THEN ON 2 TAB EVERY HOURS
     Route: 048
  2. LAMICTAL [Suspect]
     Active Substance: LAMOTRIGINE
     Indication: Major depression
     Dosage: 100 MG
     Route: 048
  3. LAMICTAL [Suspect]
     Active Substance: LAMOTRIGINE
     Dosage: 200 MG, QD
     Route: 048
  4. ALBUTEROL [Suspect]
     Active Substance: ALBUTEROL
     Indication: Dyspnoea
     Dosage: 2 PUFF(S), 6D
  5. ALBUTEROL [Suspect]
     Active Substance: ALBUTEROL
     Indication: Wheezing
  6. ALBUTEROL [Suspect]
     Active Substance: ALBUTEROL
     Indication: Cough
  7. TRAZODONE [Concomitant]
     Active Substance: TRAZODONE HYDROCHLORIDE
     Indication: Insomnia
     Dosage: 1 DF, QD, 50 MG 1 TAB AT BEDTIME
     Route: 048
  8. ABILIFY [Concomitant]
     Active Substance: ARIPIPRAZOLE
     Indication: Depression
     Dosage: 1 DF, 5MG, EVERY MORNING
     Route: 048
  9. FLUOXETINE [Concomitant]
     Active Substance: FLUOXETINE HYDROCHLORIDE
     Indication: Depression
     Dosage: 1 DF, QD, EVERY MORNING, 40 MG
     Route: 048
  10. ALPRAZOLAM [Concomitant]
     Active Substance: ALPRAZOLAM
     Indication: Anxiety
     Dosage: 1 DF, AS NEEDED, 0.25 MG
     Route: 048
  11. CLINDAMYCIN PHOSPHATE [Concomitant]
     Active Substance: CLINDAMYCIN PHOSPHATE
     Indication: Product used for unknown indication
     Dosage: 900 MG, QD
     Route: 042
  12. TORADOL [Concomitant]
     Active Substance: KETOROLAC TROMETHAMINE
     Indication: Product used for unknown indication
     Dosage: 30 MG
     Route: 042
  13. DRISDOL [Concomitant]
     Active Substance: ERGOCALCIFEROL
     Indication: Product used for unknown indication
     Dosage: 1 DF, WE (1,250 MCG (50,000 UNIT))
     Route: 048
  14. XANAX [Concomitant]
     Active Substance: ALPRAZOLAM
     Indication: Product used for unknown indication
     Dosage: UNK
  15. REMERON [Concomitant]
     Active Substance: MIRTAZAPINE
     Indication: Product used for unknown indication
     Dosage: 15 MG, 1 TAB EVERY HOUR
     Route: 048
  16. PROZAC [Concomitant]
     Active Substance: FLUOXETINE HYDROCHLORIDE
     Indication: Product used for unknown indication
     Dosage: UNK

REACTIONS (58)
  - Stevens-Johnson syndrome [Unknown]
  - Rash [Recovering/Resolving]
  - Hypokalaemia [Unknown]
  - Urinary tract infection [Unknown]
  - Conjunctivitis [Unknown]
  - Bipolar disorder [Unknown]
  - Corneal neovascularisation [Unknown]
  - Symblepharon [Unknown]
  - Ulcerative keratitis [Not Recovered/Not Resolved]
  - Pharyngeal swelling [Not Recovered/Not Resolved]
  - Oropharyngeal candidiasis [Unknown]
  - Stomatitis [Unknown]
  - Oropharyngeal pain [Unknown]
  - Keratitis [Unknown]
  - Dysuria [Unknown]
  - Pruritus [Recovering/Resolving]
  - Swelling face [Unknown]
  - Hypersensitivity [Unknown]
  - Ocular discomfort [Unknown]
  - Feeling abnormal [Unknown]
  - Depressed mood [Unknown]
  - Stress [Unknown]
  - Eye disorder [Unknown]
  - Depression [Unknown]
  - Swelling of eyelid [Unknown]
  - Abdominal pain upper [Not Recovered/Not Resolved]
  - White blood cell count increased [Unknown]
  - Pharyngitis streptococcal [Unknown]
  - Corneal scar [Unknown]
  - Hyperlipidaemia [Unknown]
  - Corneal abrasion [Unknown]
  - Breast pain [Unknown]
  - Obesity [Unknown]
  - Urticaria [Unknown]
  - Skin irritation [Unknown]
  - Pharyngitis [Unknown]
  - Lip swelling [Unknown]
  - Chapped lips [Unknown]
  - Rash papular [Unknown]
  - Mouth ulceration [Not Recovered/Not Resolved]
  - Pharyngeal ulceration [Not Recovered/Not Resolved]
  - Skin ulcer [Not Recovered/Not Resolved]
  - Gastroenteritis [Unknown]
  - Ocular hyperaemia [Unknown]
  - Nausea [Unknown]
  - Vomiting [Unknown]
  - Pyrexia [Unknown]
  - Feeding disorder [Unknown]
  - Lip erosion [Unknown]
  - Oral disorder [Unknown]
  - Oral candidiasis [Unknown]
  - Dyspareunia [Unknown]
  - Vision blurred [Unknown]
  - Trichiasis [Unknown]
  - Condition aggravated [Unknown]
  - Neovascularisation [Unknown]
  - Stomatitis haemorrhagic [Unknown]
  - Hand-foot-and-mouth disease [Unknown]

NARRATIVE: CASE EVENT DATE: 20210728
